FAERS Safety Report 6805621-4 (Version None)
Quarter: 2010Q2

REPORT INFORMATION
  Report Type: 
  Country: None (occurrence: None)
  Receive Date: 20100628
  Receipt Date: 20080206
  Transmission Date: 20101027
  Serious: No
  Sender: FDA-Public Use
  Company Number: US-PFIZER INC-2007108649

PATIENT
  Sex: Female
  Weight: 65.77 kg

DRUGS (14)
  1. RELPAX [Suspect]
     Indication: MIGRAINE
     Route: 048
  2. RELPAX [Suspect]
  3. NEURONTIN [Suspect]
     Indication: MIGRAINE PROPHYLAXIS
     Route: 048
     Dates: start: 20020101
  4. BELLAMINE [Concomitant]
     Indication: MIGRAINE
  5. DIOVANE [Concomitant]
  6. VERAPAMIL [Concomitant]
  7. RITALIN [Concomitant]
     Indication: FATIGUE
  8. SKELAXIN [Concomitant]
  9. TRAZODONE HYDROCHLORIDE [Concomitant]
  10. MULTI-VITAMINS [Concomitant]
  11. VITAMINS [Concomitant]
  12. MINERALS NOS [Concomitant]
  13. SUMATRIPTAN SUCCINATE (IMITREX) [Concomitant]
  14. ZOMIG [Concomitant]

REACTIONS (3)
  - CHEST DISCOMFORT [None]
  - MIGRAINE [None]
  - PRODUCT QUALITY ISSUE [None]
